FAERS Safety Report 5117618-3 (Version None)
Quarter: 2006Q3

REPORT INFORMATION
  Report Type: 
  Country: None (occurrence: None)
  Receive Date: 20060928
  Receipt Date: 20060928
  Transmission Date: 20061208
  Serious: Yes (Hospitalization, Disabling)
  Sender: FDA-Public Use
  Company Number: None

PATIENT
  Age: 85 Year
  Sex: Female
  Weight: 56 kg

DRUGS (2)
  1. BEVACIZUMAB, GENENTECH [Suspect]
     Indication: BREAST CANCER FEMALE
     Dosage: 15 MG/KG Q3WKS IV
     Route: 042
     Dates: start: 20060706
  2. BEVACIZUMAB, GENENTECH [Suspect]
     Indication: BREAST CANCER FEMALE
     Dosage: 15 MG/KG Q3WKS IV
     Route: 042
     Dates: start: 20060727

REACTIONS (4)
  - ABASIA [None]
  - DISEASE PROGRESSION [None]
  - FAILURE TO THRIVE [None]
  - FATIGUE [None]
